FAERS Safety Report 5935800-X (Version None)
Quarter: 2008Q4

REPORT INFORMATION
  Report Type: 
  Country: None (occurrence: None)
  Receive Date: 20081030
  Receipt Date: 20081021
  Transmission Date: 20090506
  Serious: Yes (Disabling, Other)
  Sender: FDA-Public Use
  Company Number: PHEH2008US05899

PATIENT
  Sex: Female

DRUGS (2)
  1. ENABLEX [Suspect]
     Indication: HYPERTONIC BLADDER
     Dosage: 7.5 MG, QD
     Dates: start: 20080610, end: 20080612
  2. INHALER [Concomitant]

REACTIONS (15)
  - BLINDNESS UNILATERAL [None]
  - CONFUSIONAL STATE [None]
  - DIZZINESS [None]
  - DRY MOUTH [None]
  - EMOTIONAL DISORDER [None]
  - EYE SWELLING [None]
  - INSOMNIA [None]
  - OPTIC ISCHAEMIC NEUROPATHY [None]
  - POLYURIA [None]
  - PRURITUS [None]
  - RETINAL DISORDER [None]
  - SKIN DISORDER [None]
  - SWELLING FACE [None]
  - TREMOR [None]
  - VISION BLURRED [None]
